FAERS Safety Report 7468938-9 (Version None)
Quarter: 2011Q2

REPORT INFORMATION
  Report Type: 
  Country: None (occurrence: None)
  Receive Date: 20110428
  Receipt Date: 20110419
  Transmission Date: 20111010
  Serious: Yes (Hospitalization, Other)
  Sender: FDA-Public Use
  Company Number: 2011SP013673

PATIENT
  Age: 84 Year
  Sex: Male
  Weight: 87.0906 kg

DRUGS (7)
  1. ACETAMINOPHEN [Concomitant]
  2. AMITIZA [Concomitant]
  3. MIRALAX [Suspect]
     Indication: CONSTIPATION
     Dosage: 17 GM; HS; PO
     Route: 048
     Dates: start: 20090101, end: 20110301
  4. ASPIRIN [Concomitant]
  5. SYNTHROID [Concomitant]
  6. TOPOROL [Concomitant]
  7. PREVACID [Concomitant]

REACTIONS (5)
  - COLONIC POLYP [None]
  - DRUG EFFECT DECREASED [None]
  - DRUG INEFFECTIVE [None]
  - NAUSEA [None]
  - CONSTIPATION [None]
